FAERS Safety Report 8765682 (Version 2)
Quarter: 2012Q4

REPORT INFORMATION
  Report Type: 
  Country: JP (occurrence: JP)
  Receive Date: 20120904
  Receipt Date: 20121009
  Transmission Date: 20130627
  Serious: Yes (Hospitalization)
  Sender: FDA-Public Use
  Company Number: PHHY2012JP075281

PATIENT
  Age: 66 Year
  Sex: Male

DRUGS (7)
  1. COMTAN [Suspect]
     Indication: PARKINSON^S DISEASE
     Dosage: 1 tablet 6 times daily (600mg daily)
     Route: 048
     Dates: start: 20120725
  2. COMTAN [Suspect]
     Dosage: 1 tablet 3 times daily (300mg daily)
     Route: 048
  3. MADOPAR [Concomitant]
     Indication: PARKINSON^S DISEASE
     Dosage: 6 DF (1 tablet 6 times daily)
     Route: 048
  4. MADOPAR [Concomitant]
     Dosage: 3 DF, UNK
     Route: 048
  5. ARTANE [Concomitant]
     Indication: PARKINSON^S DISEASE
     Route: 048
  6. FP [Concomitant]
     Indication: PARKINSON^S DISEASE
     Route: 048
  7. DOPS [Concomitant]
     Indication: PARKINSON^S DISEASE
     Route: 048

REACTIONS (2)
  - Respiratory disorder [Recovering/Resolving]
  - Decreased appetite [Unknown]
